FAERS Safety Report 7032832-8 (Version None)
Quarter: 2010Q4

REPORT INFORMATION
  Report Type: 
  Country: None (occurrence: None)
  Receive Date: 20101004
  Receipt Date: 20100921
  Transmission Date: 20110411
  Serious: Yes (Other)
  Sender: FDA-Public Use
  Company Number: 2010SP002647

PATIENT
  Age: 16 Year
  Sex: Male

DRUGS (2)
  1. XOPENEX [Suspect]
     Indication: CHEST DISCOMFORT
     Dosage: 180 UG; 1X; INHALATION
     Route: 055
  2. XOPENEX [Suspect]
     Indication: DYSPNOEA
     Dosage: 180 UG; 1X; INHALATION
     Route: 055

REACTIONS (8)
  - ABASIA [None]
  - DYSPNOEA EXERTIONAL [None]
  - NASAL CONGESTION [None]
  - SPEECH DISORDER [None]
  - SUFFOCATION FEELING [None]
  - TACHYPNOEA [None]
  - THERAPEUTIC RESPONSE DECREASED [None]
  - USE OF ACCESSORY RESPIRATORY MUSCLES [None]
